FAERS Safety Report 20594580 (Version 3)
Quarter: 2022Q1

REPORT INFORMATION
  Report Type: Spontaneous
  Country: US (occurrence: US)
  Receive Date: 20220315
  Receipt Date: 20220323
  Transmission Date: 20220423
  Serious: Yes (Hospitalization, Other)
  Sender: FDA-Public Use
  Company Number: US-NOVARTISTESTPH-NVSC2022US058879

PATIENT
  Age: 26 Year
  Sex: Female

DRUGS (1)
  1. KYMRIAH [Suspect]
     Active Substance: TISAGENLECLEUCEL
     Indication: Acute lymphocytic leukaemia
     Dosage: 0.8 X 10^8 CAR POSITIVE VIABLE T-CELLS
     Route: 065

REACTIONS (21)
  - Clostridium difficile colitis [Unknown]
  - Nausea [Unknown]
  - Vomiting [Unknown]
  - Septic shock [Unknown]
  - Febrile neutropenia [Unknown]
  - Acute lymphocytic leukaemia recurrent [Unknown]
  - Ileus [Unknown]
  - Clostridium difficile colitis [Unknown]
  - Drug-induced liver injury [Unknown]
  - Pancytopenia [Unknown]
  - Bacteraemia [Unknown]
  - Perirectal abscess [Unknown]
  - Colitis [Unknown]
  - Antimicrobial susceptibility test resistant [Unknown]
  - Klebsiella bacteraemia [Unknown]
  - Pseudomonal bacteraemia [Unknown]
  - Minimal residual disease [Unknown]
  - Abdominal distension [Unknown]
  - Diarrhoea [Unknown]
  - Pyrexia [Unknown]
  - Headache [Unknown]

NARRATIVE: CASE EVENT DATE: 20170907
